FAERS Safety Report 5097884-3 (Version None)
Quarter: 2006Q3

REPORT INFORMATION
  Report Type: 
  Country: None (occurrence: None)
  Receive Date: 20060905
  Receipt Date: 20060905
  Transmission Date: 20061208
  Serious: Yes (Life-Threatening, Hospitalization, Disabling, Other)
  Sender: FDA-Public Use
  Company Number: None

PATIENT
  Age: 43 Year
  Sex: Male
  Weight: 88.4514 kg

DRUGS (1)
  1. PAXIL [Suspect]
     Indication: DEPRESSION
     Dates: start: 19940715, end: 20060902

REACTIONS (9)
  - ABNORMAL BEHAVIOUR [None]
  - ADVERSE DRUG REACTION [None]
  - AGGRESSION [None]
  - AMNESIA [None]
  - ANXIETY [None]
  - DRUG WITHDRAWAL SYNDROME [None]
  - INAPPROPRIATE SCHEDULE OF DRUG ADMINISTRATION [None]
  - PERFORMANCE STATUS DECREASED [None]
  - SUICIDAL IDEATION [None]
